FAERS Safety Report 4337532-0 (Version None)
Quarter: 2004Q2

REPORT INFORMATION
  Report Type: 
  Country: None (occurrence: None)
  Receive Date: 20040413
  Receipt Date: 20040312
  Transmission Date: 20050107
  Serious: Yes (Hospitalization, Disabling)
  Sender: FDA-Public Use
  Company Number: JP-GLAXOSMITHKLINE-B0326716A

PATIENT
  Age: 68 Day
  Sex: Female
  Weight: 34 kg

DRUGS (15)
  1. VALTREX [Suspect]
     Indication: HERPES ZOSTER
     Dosage: 1000MG PER DAY
     Route: 048
     Dates: start: 20040305, end: 20040307
  2. HAEMODIALYSIS [Concomitant]
  3. ISOSORBIDE DINITRATE [Concomitant]
     Dosage: 40MG PER DAY
     Route: 048
     Dates: start: 20040308
  4. DIGITOXIN TAB [Concomitant]
     Dosage: .025MG PER DAY
     Route: 048
     Dates: start: 20040308
  5. WARFARIN POTASSIUM [Concomitant]
     Dosage: 1MG PER DAY
     Route: 048
     Dates: start: 20040308
  6. ALFACALCIDOL [Concomitant]
     Dosage: .375UG PER DAY
     Route: 048
     Dates: start: 20040308
  7. ZOPICLONE [Concomitant]
     Route: 048
     Dates: start: 20040308
  8. TRIMEBUTINE MALEATE [Concomitant]
     Dosage: 300MG PER DAY
     Route: 048
  9. TEPRENONE [Concomitant]
     Dosage: 1.5G PER DAY
     Route: 048
  10. LANSOPRAZOLE [Concomitant]
     Dosage: 15MG PER DAY
     Route: 048
     Dates: start: 20021224
  11. PRECIPITATED CALCIUM CARBONATE [Concomitant]
     Dosage: 2G PER DAY
     Route: 048
  12. LEVOTHYROXINE SODIUM [Concomitant]
     Indication: HYPOTHYROIDISM
     Dosage: .025MG PER DAY
     Route: 048
     Dates: start: 20031223
  13. EPOETIN BETA [Concomitant]
     Dosage: 6000IU PER DAY
  14. ALBUMIN (HUMAN) [Concomitant]
     Dosage: 50ML PER DAY
     Dates: start: 20040310, end: 20040310
  15. MAGNESIUM OXIDE [Concomitant]
     Dosage: 2G PER DAY
     Route: 048
     Dates: start: 20040313

REACTIONS (15)
  - BLOOD PRESSURE INCREASED [None]
  - CEREBRAL ATROPHY [None]
  - CONFUSIONAL STATE [None]
  - CRYING [None]
  - DELIRIUM [None]
  - DELUSION [None]
  - DEPRESSED LEVEL OF CONSCIOUSNESS [None]
  - DISORIENTATION [None]
  - DYSKINESIA [None]
  - DYSLALIA [None]
  - HAEMODIALYSIS [None]
  - HALLUCINATION [None]
  - HALLUCINATION, VISUAL [None]
  - RESTLESSNESS [None]
  - SPEECH DISORDER [None]
